FAERS Safety Report 6535386-5 (Version None)
Quarter: 2009Q4

REPORT INFORMATION
  Report Type: 
  Country: None (occurrence: None)
  Receive Date: 20091228
  Receipt Date: 20090819
  Transmission Date: 20100525
  Serious: Yes (Hospitalization)
  Sender: FDA-Public Use
  Company Number: US-003321

PATIENT
  Age: 48 Year
  Sex: Female

DRUGS (6)
  1. MULTIHANCE [Suspect]
     Indication: NECK PAIN
     Dosage: 6ML QD INTRAVENOUS
     Route: 042
     Dates: start: 20090803, end: 20090803
  2. MULTIHANCE [Suspect]
     Indication: NUCLEAR MAGNETIC RESONANCE IMAGING
     Dosage: 6ML QD INTRAVENOUS
     Route: 042
     Dates: start: 20090803, end: 20090803
  3. IBUPROFEN [Concomitant]
  4. HYDROCODONE (HYDROCODONE) [Concomitant]
  5. DIPHENHYDRAMINE HCL [Concomitant]
  6. ALBUTEROL INHALER (SALBUTAMOL) [Concomitant]

REACTIONS (1)
  - ANAPHYLACTIC SHOCK [None]
